FAERS Safety Report 11784071 (Version 1)
Quarter: 2015Q4

REPORT INFORMATION
  Report Type: Spontaneous
  Country: US (occurrence: US)
  Receive Date: 20151128
  Receipt Date: 20151128
  Transmission Date: 20160305
  Serious: No
  Sender: FDA-Public Use
  Company Number: US-NOVEN PHARMACEUTICALS, INC.-US2015000764

PATIENT
  Age: 48 Year
  Sex: Female

DRUGS (3)
  1. VIAGRA [Concomitant]
     Active Substance: SILDENAFIL CITRATE
  2. MINIVELLE [Suspect]
     Active Substance: ESTRADIOL
     Indication: HYSTERECTOMY
     Dosage: 0.1 MG, UNKNOWN
     Route: 062
     Dates: start: 201409
  3. SIMVASTATIN. [Concomitant]
     Active Substance: SIMVASTATIN

REACTIONS (2)
  - Bartholin^s cyst [Not Recovered/Not Resolved]
  - Vaginal discharge [Not Recovered/Not Resolved]

NARRATIVE: CASE EVENT DATE: 201412
